FAERS Safety Report 7410719-6 (Version None)
Quarter: 2011Q2

REPORT INFORMATION
  Report Type: 
  Country: None (occurrence: None)
  Receive Date: 20110405
  Receipt Date: 20110320
  Transmission Date: 20111010
  Serious: Yes (Other)
  Sender: FDA-Public Use
  Company Number: 1000019625

PATIENT
  Sex: Female

DRUGS (1)
  1. MEMANTINE [Suspect]
     Dosage: ORAL
     Route: 048

REACTIONS (1)
  - EPILEPSY [None]
